FAERS Safety Report 6613091-4 (Version None)
Quarter: 2010Q1

REPORT INFORMATION
  Report Type: 
  Country: None (occurrence: None)
  Receive Date: 20100304
  Receipt Date: 20100222
  Transmission Date: 20100710
  Serious: Yes (Hospitalization)
  Sender: FDA-Public Use
  Company Number: 2006BI016391

PATIENT
  Age: 59 Year
  Sex: Female

DRUGS (10)
  1. TYSABRI [Suspect]
     Indication: MULTIPLE SCLEROSIS
     Route: 042
     Dates: start: 20061025
  2. TYLENOL-500 [Concomitant]
     Indication: BACK PAIN
  3. NSAIDS [Concomitant]
     Indication: BACK PAIN
  4. VITAMIN [Concomitant]
     Indication: DRUG USE FOR UNKNOWN INDICATION
  5. FOSAMAX [Concomitant]
     Indication: OSTEOPENIA
  6. BACLOFEN [Concomitant]
  7. OXYBUTIN [Concomitant]
  8. ESTRACE [Concomitant]
  9. GLUCOSAMINE [Concomitant]
  10. SENOKOT [Concomitant]

REACTIONS (17)
  - BACK PAIN [None]
  - BLOOD ALKALINE PHOSPHATASE INCREASED [None]
  - BLOOD BILIRUBIN INCREASED [None]
  - BONE MARROW DISORDER [None]
  - CHEILITIS [None]
  - JAUNDICE [None]
  - LIP DRY [None]
  - LIVER FUNCTION TEST ABNORMAL [None]
  - MUSCULAR WEAKNESS [None]
  - OEDEMA PERIPHERAL [None]
  - OSTEOARTHRITIS [None]
  - PNEUMONIA VIRAL [None]
  - PYREXIA [None]
  - RENAL CYST [None]
  - TONGUE DISORDER [None]
  - TONGUE DRY [None]
  - WHITE BLOOD CELL COUNT INCREASED [None]
